FAERS Safety Report 5888770-7 (Version None)
Quarter: 2008Q3

REPORT INFORMATION
  Report Type: 
  Country: None (occurrence: None)
  Receive Date: 20080917
  Receipt Date: 20080917
  Transmission Date: 20090109
  Serious: Yes (Other)
  Sender: FDA-Public Use
  Company Number: None

PATIENT
  Sex: Male
  Weight: 99.3377 kg

DRUGS (1)
  1. ADVAIR DISKUS 250/50 [Suspect]
     Indication: LUNG DISORDER
     Dosage: 1 PUFF DAILY PO  (DURATION: APPROXIMATELY 3 1/2 YEARS)
     Route: 048

REACTIONS (1)
  - CHILLS [None]
